FAERS Safety Report 9566613 (Version 1)
Quarter: 2013Q3

REPORT INFORMATION
  Report Type: Spontaneous
  Country: US (occurrence: US)
  Receive Date: 20130930
  Receipt Date: 20130930
  Transmission Date: 20140515
  Serious: No
  Sender: FDA-Public Use
  Company Number: US-AMGEN-USASP2012062147

PATIENT
  Sex: Male

DRUGS (3)
  1. ENBREL [Suspect]
     Indication: PRODUCT USED FOR UNKNOWN INDICATION
     Dosage: 50 MG, 2 TIMES/WK
     Route: 058
  2. ADDERALL [Concomitant]
     Dosage: 30 MG, UNK
     Route: 048
  3. ASPIRIN BUFFERED [Concomitant]
     Dosage: 325 MG, UNK
     Route: 048

REACTIONS (2)
  - Abdominal injury [Unknown]
  - Intra-abdominal haematoma [Unknown]
